FAERS Safety Report 8471054-0 (Version None)
Quarter: 2012Q2

REPORT INFORMATION
  Report Type: 
  Country: None (occurrence: None)
  Receive Date: 20120627
  Receipt Date: 20120618
  Transmission Date: 20120825
  Serious: Yes (Other)
  Sender: FDA-Public Use
  Company Number: US-BAYER-2012-060577

PATIENT
  Sex: Female

DRUGS (2)
  1. ASPIRIN [Suspect]
     Dosage: 1 TAB ONCE DAILY
     Route: 048
  2. ASPIRIN [Suspect]
     Dosage: UNK
     Route: 048
     Dates: start: 19480101, end: 19480101

REACTIONS (2)
  - ABDOMINAL DISCOMFORT [None]
  - GASTRIC ULCER [None]
